FAERS Safety Report 15692611 (Version 2)
Quarter: 2019Q1

REPORT INFORMATION
  Report Type: Spontaneous
  Country: US (occurrence: US)
  Receive Date: 20181206
  Receipt Date: 20190207
  Transmission Date: 20190417
  Serious: No
  Sender: FDA-Public Use
  Company Number: US-009507513-1811USA004071

PATIENT
  Age: 17 Year
  Sex: Female
  Weight: 73.83 kg

DRUGS (1)
  1. NEXPLANON [Suspect]
     Active Substance: ETONOGESTREL
     Indication: CONTRACEPTION
     Dosage: FIRST TIME. RIGHT ARM, 68MG, ROD
     Route: 059
     Dates: start: 20170627, end: 20181107

REACTIONS (2)
  - Device kink [Recovered/Resolved]
  - No adverse event [Unknown]

NARRATIVE: CASE EVENT DATE: 201711
